FAERS Safety Report 9433163 (Version 3)
Quarter: 2014Q4

REPORT INFORMATION
  Report Type: Spontaneous
  Country: US (occurrence: US)
  Receive Date: 20130731
  Receipt Date: 20141218
  Transmission Date: 20150529
  Serious: Yes (Hospitalization, Other)
  Sender: FDA-Public Use
  Company Number: US-GLAXOSMITHKLINE-A1035472A

PATIENT
  Sex: Male
  Weight: 87.7 kg

DRUGS (10)
  1. VOTRIENT [Suspect]
     Active Substance: PAZOPANIB HYDROCHLORIDE
     Indication: RENAL CANCER
     Dosage: 800 MG, QD
     Route: 048
  2. DIURETIC [Concomitant]
     Active Substance: UNSPECIFIED INGREDIENT
  3. LISINOPRIL. [Suspect]
     Active Substance: LISINOPRIL
     Indication: PRODUCT USED FOR UNKNOWN INDICATION
     Route: 065
     Dates: start: 20130730
  4. VOTRIENT [Suspect]
     Active Substance: PAZOPANIB HYDROCHLORIDE
     Indication: MALIGNANT URINARY TRACT NEOPLASM
     Dosage: 800 MG, QD
     Route: 048
     Dates: start: 20130419, end: 20130730
  5. MEGACE [Concomitant]
     Active Substance: MEGESTROL ACETATE
  6. NEXAVAR [Suspect]
     Active Substance: SORAFENIB
     Indication: PRODUCT USED FOR UNKNOWN INDICATION
     Dosage: UNK, U
     Route: 065
  7. BETHANECHOL CHLORIDE. [Concomitant]
     Active Substance: BETHANECHOL CHLORIDE
  8. LORTAB [Concomitant]
     Active Substance: ACETAMINOPHEN\HYDROCODONE BITARTRATE
  9. METHADONE [Concomitant]
     Active Substance: METHADONE HYDROCHLORIDE
  10. SPIRIVA [Concomitant]
     Active Substance: TIOTROPIUM BROMIDE MONOHYDRATE

REACTIONS (13)
  - Glomerular filtration rate abnormal [Recovering/Resolving]
  - Blood potassium increased [Unknown]
  - Rash macular [Recovering/Resolving]
  - Oedema [Unknown]
  - Joint swelling [Unknown]
  - Blood pressure abnormal [Unknown]
  - Haemorrhage [Recovering/Resolving]
  - Blood blister [Recovering/Resolving]
  - Sunburn [Recovering/Resolving]
  - Renal failure [Unknown]
  - Acute kidney injury [Recovered/Resolved]
  - Rash [Recovering/Resolving]
  - Dyspnoea exertional [Unknown]
